FAERS Safety Report 10749815 (Version 2)
Quarter: 2015Q1

REPORT INFORMATION
  Report Type: Spontaneous
  Country: US (occurrence: US)
  Receive Date: 20150129
  Receipt Date: 20150331
  Transmission Date: 20150721
  Serious: Yes (Other)
  Sender: FDA-Public Use
  Company Number: US-GLAXOSMITHKLINE-US2015GSK010457

PATIENT
  Sex: Female

DRUGS (1)
  1. PROMACTA [Suspect]
     Active Substance: ELTROMBOPAG OLAMINE
     Indication: PLATELET COUNT DECREASED
     Dosage: 50 AND 25 MG, U
     Dates: start: 2009

REACTIONS (3)
  - Osteopenia [Not Recovered/Not Resolved]
  - Deafness [Not Recovered/Not Resolved]
  - Cataract operation [Unknown]
